FAERS Safety Report 6369684-5 (Version None)
Quarter: 2009Q3

REPORT INFORMATION
  Report Type: 
  Country: None (occurrence: None)
  Receive Date: 20090923
  Receipt Date: 20090911
  Transmission Date: 20100115
  Serious: Yes (Other)
  Sender: FDA-Public Use
  Company Number: US-PFIZER INC-2005116686

PATIENT
  Sex: Female

DRUGS (7)
  1. PROVERA [Suspect]
     Indication: HORMONE REPLACEMENT THERAPY
     Route: 048
     Dates: start: 19880101, end: 19960101
  2. PREMARIN [Suspect]
     Indication: HORMONE REPLACEMENT THERAPY
     Route: 065
     Dates: start: 19880101, end: 19960101
  3. PREMPRO [Suspect]
     Indication: HORMONE REPLACEMENT THERAPY
     Route: 065
     Dates: start: 19960101, end: 19990101
  4. PROGESTIN [Suspect]
     Indication: HORMONE REPLACEMENT THERAPY
     Dosage: UNK
     Dates: start: 19880101, end: 19960101
  5. ACETYLSALICYLIC ACID [Concomitant]
     Indication: BLOOD PRESSURE
     Dosage: UNK
     Dates: start: 19890101
  6. COZAAR [Concomitant]
     Indication: BLOOD PRESSURE
     Dosage: UNK
     Dates: start: 19951204
  7. ATENOLOL [Concomitant]
     Indication: BLOOD PRESSURE
     Dosage: UNK
     Dates: start: 19950101

REACTIONS (1)
  - BREAST CANCER FEMALE [None]
